FAERS Safety Report 7534707-4 (Version None)
Quarter: 2011Q2

REPORT INFORMATION
  Report Type: 
  Country: None (occurrence: None)
  Receive Date: 20110609
  Receipt Date: 20110428
  Transmission Date: 20111010
  Serious: Yes (Other)
  Sender: FDA-Public Use
  Company Number: PHHY2011JP42072

PATIENT
  Age: 68 Year
  Sex: Female

DRUGS (1)
  1. FAMVIR [Suspect]
     Dosage: 1500 MG, QD
     Route: 048
     Dates: start: 20110412, end: 20110415

REACTIONS (1)
  - ALTERED STATE OF CONSCIOUSNESS [None]
